FAERS Safety Report 14457944 (Version 1)
Quarter: 2018Q1

REPORT INFORMATION
  Report Type: Spontaneous
  Country: US (occurrence: US)
  Receive Date: 20180126
  Receipt Date: 20180126
  Transmission Date: 20180509
  Serious: No
  Sender: FDA-Public Use
  Company Number: None

PATIENT
  Age: 24 Year
  Sex: Female
  Weight: 54.9 kg

DRUGS (6)
  1. VITAMIN E [Concomitant]
     Active Substance: .ALPHA.-TOCOPHEROL
  2. VITAMIN B12 [Concomitant]
     Active Substance: CYANOCOBALAMIN
  3. ESCITALOPRAM [Suspect]
     Active Substance: ESCITALOPRAM OXALATE
     Indication: ABDOMINAL DISTENSION
     Dosage: ?          QUANTITY:1 TABLET(S);?
     Route: 048
     Dates: start: 20180125, end: 20180126
  4. VITAMIN D [Concomitant]
     Active Substance: CHOLECALCIFEROL
  5. PROAIR HFA [Concomitant]
     Active Substance: ALBUTEROL SULFATE
  6. CAPRYLIC ACID [Concomitant]

REACTIONS (11)
  - Dizziness [None]
  - Loss of consciousness [None]
  - Joint stiffness [None]
  - Heart rate increased [None]
  - Somnolence [None]
  - Flushing [None]
  - Asthenia [None]
  - Vomiting [None]
  - Nausea [None]
  - Balance disorder [None]
  - Hyperhidrosis [None]

NARRATIVE: CASE EVENT DATE: 20180126
